FAERS Safety Report 13165441 (Version 2)
Quarter: 2017Q1

REPORT INFORMATION
  Report Type: Spontaneous
  Country: BR (occurrence: BR)
  Receive Date: 20170131
  Receipt Date: 20170301
  Transmission Date: 20170428
  Serious: Yes (Hospitalization)
  Sender: FDA-Public Use
  Company Number: BR-ASTRAZENECA-2017SE09096

PATIENT
  Age: 32984 Day
  Sex: Female
  Weight: 50 kg

DRUGS (13)
  1. LEXAPRO [Concomitant]
     Active Substance: ESCITALOPRAM OXALATE
  2. LASIX [Concomitant]
     Active Substance: FUROSEMIDE
     Dosage: 40.0MG UNKNOWN
     Route: 048
     Dates: start: 20161017
  3. SEROQUEL [Suspect]
     Active Substance: QUETIAPINE FUMARATE
     Dosage: 25.0MG UNKNOWN
     Route: 048
  4. CLEXANE [Concomitant]
     Active Substance: ENOXAPARIN SODIUM
     Dosage: 40.0MG UNKNOWN
     Route: 058
     Dates: start: 20160922
  5. ASA [Concomitant]
     Active Substance: ASPIRIN
     Route: 048
     Dates: start: 20160922, end: 20161025
  6. BAMIFIX [Concomitant]
     Active Substance: BAMIFYLLINE HYDROCHLORIDE
     Dosage: 300.0MG UNKNOWN
     Route: 048
     Dates: start: 20161015, end: 20161022
  7. FORASEQ [Concomitant]
     Active Substance: BUDESONIDE\FORMOTEROL FUMARATE
     Dosage: 400 + 12 MCG
     Route: 055
     Dates: start: 20160924
  8. FRONTAL [Concomitant]
     Active Substance: ALPRAZOLAM
     Dosage: 0.25MG UNKNOWN
     Route: 048
     Dates: start: 20160921, end: 20161018
  9. TAMARINE [Concomitant]
     Active Substance: HERBALS
     Dosage: 14.634 MG + 11.7 MG
     Route: 048
     Dates: start: 20160927, end: 20161024
  10. MIRTAZAPINE. [Concomitant]
     Active Substance: MIRTAZAPINE
  11. CORTISONAL [Concomitant]
     Route: 042
     Dates: start: 20161015, end: 20161022
  12. GABAPENTIN. [Concomitant]
     Active Substance: GABAPENTIN
     Route: 048
     Dates: start: 20160921, end: 20161021
  13. LAMICTAL [Concomitant]
     Active Substance: LAMOTRIGINE
     Dosage: 50.0MG UNKNOWN
     Route: 048
     Dates: start: 20160926, end: 20161107

REACTIONS (13)
  - Rash [Recovering/Resolving]
  - Haemoglobin decreased [Unknown]
  - Dysuria [Unknown]
  - Dysphagia [Unknown]
  - Acute respiratory failure [Recovering/Resolving]
  - Bronchospasm [Recovering/Resolving]
  - Red blood cell count decreased [Unknown]
  - Haematocrit decreased [Unknown]
  - Anal sphincter atony [Unknown]
  - Decreased appetite [Unknown]
  - Pyrexia [Unknown]
  - General physical health deterioration [Unknown]
  - Cough [Unknown]

NARRATIVE: CASE EVENT DATE: 20161018
